FAERS Safety Report 7225909 (Version 2)
Quarter: 2013Q4

REPORT INFORMATION
  Report Type: Report from Study
  Country: CN (occurrence: CN)
  Receive Date: 20091222
  Receipt Date: 20131218
  Transmission Date: 20140711
  Serious: Yes (Hospitalization)
  Sender: FDA-Public Use
  Company Number: CN-SANOFI-AVENTIS-2009SA008342

PATIENT
  Age: 58 Year
  Sex: Female
  Weight: 53 kg

DRUGS (6)
  1. DOCETAXEL [Suspect]
     Indication: SQUAMOUS CELL CARCINOMA
     Route: 041
     Dates: start: 20091210, end: 20091210
  2. CISPLATIN [Suspect]
     Indication: SQUAMOUS CELL CARCINOMA
     Dates: start: 20091210, end: 20091210
  3. 5-FU [Suspect]
     Indication: SQUAMOUS CELL CARCINOMA
     Dosage: DURATION: 5 DAYS
     Dates: start: 20091210, end: 20091216
  4. DEXAMETHASONE [Concomitant]
     Route: 048
  5. GRANISETRON [Concomitant]
  6. GLUCOSE [Concomitant]

REACTIONS (2)
  - Hyponatraemia [Recovering/Resolving]
  - Febrile neutropenia [Recovered/Resolved]
